FAERS Safety Report 8262470-0 (Version None)
Quarter: 2012Q2

REPORT INFORMATION
  Report Type: 
  Country: None (occurrence: None)
  Receive Date: 20120405
  Receipt Date: 20120328
  Transmission Date: 20120825
  Serious: Yes (Hospitalization)
  Sender: FDA-Public Use
  Company Number: NL-MEDIMMUNE-MEDI-0014784

PATIENT
  Sex: Male
  Weight: 12.3 kg

DRUGS (3)
  1. SYNAGIS [Suspect]
     Indication: HEART DISEASE CONGENITAL
     Route: 030
     Dates: start: 20111003, end: 20111230
  2. FUROSEMIDE [Concomitant]
  3. SYNAGIS [Suspect]
     Route: 030
     Dates: start: 20120130, end: 20120328

REACTIONS (1)
  - HYPOGLYCAEMIA [None]
